FAERS Safety Report 9603424 (Version 1)
Quarter: 2013Q4

REPORT INFORMATION
  Report Type: Spontaneous
  Country: US (occurrence: US)
  Receive Date: 20131007
  Receipt Date: 20131007
  Transmission Date: 20140711
  Serious: Yes (Other)
  Sender: FDA-Public Use
  Company Number: US-ROCHE-1284005

PATIENT
  Sex: Male
  Weight: 79.45 kg

DRUGS (2)
  1. PEGASYS [Suspect]
     Indication: HEPATITIS C
     Route: 042
     Dates: start: 20121214
  2. RIBAVIRIN [Suspect]
     Indication: HEPATITIS C
     Route: 065
     Dates: start: 20121214

REACTIONS (10)
  - Visual impairment [Unknown]
  - Influenza like illness [Unknown]
  - Feeling cold [Unknown]
  - Diarrhoea [Unknown]
  - Muscle spasms [Unknown]
  - Convulsion [Unknown]
  - Convulsion [Unknown]
  - Nasopharyngitis [Unknown]
  - Feeling hot [Unknown]
  - Abdominal pain [Unknown]
